FAERS Safety Report 17573050 (Version 4)
Quarter: 2024Q2

REPORT INFORMATION
  Report Type: Spontaneous
  Country: IT (occurrence: IT)
  Receive Date: 20200323
  Receipt Date: 20240401
  Transmission Date: 20240716
  Serious: Yes (Death, Other)
  Sender: FDA-Public Use
  Company Number: IT-JUVISE-202000030

PATIENT
  Age: 40 Year
  Sex: Male

DRUGS (31)
  1. DELORAZEPAM [Suspect]
     Active Substance: DELORAZEPAM
     Indication: Psychomotor hyperactivity
     Dosage: 5 MILLIGRAM (DAY 1)
     Route: 042
  2. DELORAZEPAM [Suspect]
     Active Substance: DELORAZEPAM
     Indication: Agitation
     Dosage: 5 MILLIGRAM, PM (DAY 2 AT NIGHT)
     Route: 030
  3. DELORAZEPAM [Suspect]
     Active Substance: DELORAZEPAM
     Dosage: 5 MILLIGRAM, QD
     Route: 030
  4. DELORAZEPAM [Suspect]
     Active Substance: DELORAZEPAM
     Indication: Psychomotor hyperactivity
     Dosage: 5 MILLIGRAM, QD (DAY 3 TO DAY 5)
     Route: 048
  5. CLOZAPINE [Suspect]
     Active Substance: CLOZAPINE
     Indication: Agitation
     Dosage: 100 MILLIGRAM (DAY 2)
     Route: 048
  6. CLOZAPINE [Suspect]
     Active Substance: CLOZAPINE
     Indication: Mania
     Dosage: DAY 3 AND 5 :  100 MG 3 TIMES DAILY
     Route: 048
  7. CLOZAPINE [Suspect]
     Active Substance: CLOZAPINE
     Indication: Psychomotor hyperactivity
     Dosage: 400 MILLIGRAM, QD (DAY 4)
     Route: 048
  8. CLOZAPINE [Suspect]
     Active Substance: CLOZAPINE
     Dosage: 400 MILLIGRAM, QD (BEFORE HOSPITALIZATION)
     Route: 048
  9. CLOZAPINE [Suspect]
     Active Substance: CLOZAPINE
     Dosage: 100 MILLIGRAM, QD
     Route: 048
  10. CLOZAPINE [Suspect]
     Active Substance: CLOZAPINE
     Dosage: 300 MILLIGRAM, QD
     Route: 048
  11. CLOZAPINE [Suspect]
     Active Substance: CLOZAPINE
     Dosage: 400 MILLIGRAM, QD
     Route: 048
  12. MIDAZOLAM [Suspect]
     Active Substance: MIDAZOLAM
     Indication: Psychomotor hyperactivity
     Dosage: DAY 1 AT 1.00 PM, 5 MG AT NIGHT
     Route: 042
  13. MIDAZOLAM [Suspect]
     Active Substance: MIDAZOLAM
     Indication: Agitation
     Dosage: 5 MILLIGRAM
     Route: 042
  14. MIDAZOLAM [Suspect]
     Active Substance: MIDAZOLAM
     Indication: Insomnia
     Dosage: 15 MILLIGRAM
     Route: 042
  15. HALOPERIDOL [Suspect]
     Active Substance: HALOPERIDOL
     Indication: Psychomotor hyperactivity
     Dosage: 10 MILLIGRAM, QD (DAY 5)
     Route: 048
  16. HALOPERIDOL [Suspect]
     Active Substance: HALOPERIDOL
     Dosage: 5 MILLIGRAM, QD (DAY 4)
     Route: 048
  17. VALPROATE [Suspect]
     Active Substance: VALPROIC ACID
     Indication: Psychomotor hyperactivity
     Dosage: DAY 3 TO DAY 5 : 1500 MG DAILY
     Route: 048
  18. VALPROATE [Suspect]
     Active Substance: VALPROIC ACID
     Indication: Insomnia
     Dosage: 500 MILLIGRAM (DAY 1)
     Route: 048
  19. VALPROATE [Suspect]
     Active Substance: VALPROIC ACID
     Indication: Agitation
     Dosage: 500 MILLIGRAM (DAY 2)
     Route: 048
  20. CHLORPROMAZINE [Suspect]
     Active Substance: CHLORPROMAZINE
     Indication: Product used for unknown indication
     Dosage: 60 MILLIGRAM, QD
     Route: 048
  21. PROMAZINE [Suspect]
     Active Substance: PROMAZINE
     Indication: Psychomotor hyperactivity
     Dosage: 120 MILLIGRAM, QD (DAY 5)
     Route: 048
  22. PROMAZINE [Suspect]
     Active Substance: PROMAZINE
     Dosage: 60 MILLIGRAM (DAY 3 AND 4)
     Route: 048
  23. CLOTHIAPINE [Suspect]
     Active Substance: CLOTHIAPINE
     Indication: Psychomotor hyperactivity
     Dosage: 40 MILLIGRAM, PM (AT NIGHT, DAY 1)
     Route: 030
  24. CLOTHIAPINE [Suspect]
     Active Substance: CLOTHIAPINE
     Indication: Insomnia
     Dosage: 40 MILLIGRAM, Q8H (DAY 2)
     Route: 030
  25. CLOTHIAPINE [Suspect]
     Active Substance: CLOTHIAPINE
     Dosage: 40 MILLIGRAM, Q8H (DAY 3)
     Route: 030
  26. CLOTHIAPINE [Suspect]
     Active Substance: CLOTHIAPINE
     Dosage: 120 MILLIGRAM, QD
     Route: 030
  27. HALOPERIDOL [Suspect]
     Active Substance: HALOPERIDOL
     Indication: Psychomotor hyperactivity
     Dosage: 15 MILLIGRAM (DAY 1)
     Route: 042
  28. HALOPERIDOL [Suspect]
     Active Substance: HALOPERIDOL
     Indication: Agitation
  29. CHLORPROMAZINE [Concomitant]
     Active Substance: CHLORPROMAZINE
     Indication: Psychomotor hyperactivity
     Dosage: 50 MILLIGRAM (DAY 1)
     Route: 042
  30. CHLORPROMAZINE [Concomitant]
     Active Substance: CHLORPROMAZINE
     Indication: Agitation
     Dosage: 50 MILLIGRAM, PM (DAY 2 AT NIGHT)
     Route: 030
  31. CHLORPHENIRAMINE [Concomitant]
     Active Substance: CHLORPHENIRAMINE
     Indication: Psychomotor hyperactivity
     Dosage: 10 MILLIGRAM (DAY 1)
     Route: 042

REACTIONS (3)
  - Sudden death [Fatal]
  - Syncope [Unknown]
  - Drug ineffective [Unknown]
